FAERS Safety Report 17208670 (Version 2)
Quarter: 2020Q2

REPORT INFORMATION
  Report Type: Spontaneous
  Country: JP (occurrence: JP)
  Receive Date: 20191227
  Receipt Date: 20200630
  Transmission Date: 20200713
  Serious: Yes (Other)
  Sender: FDA-Public Use
  Company Number: JP-009507513-1910JPN001925J

PATIENT
  Age: 77 Year
  Sex: Male
  Weight: 55 kg

DRUGS (10)
  1. NEXIUM [Concomitant]
     Active Substance: ESOMEPRAZOLE MAGNESIUM
     Indication: PEPTIC ULCER
     Dosage: 20 MILLIGRAM, QD
     Route: 048
     Dates: start: 20151122
  2. CEFAZOLIN SODIUM. [Suspect]
     Active Substance: CEFAZOLIN SODIUM
     Indication: DEVICE RELATED INFECTION
     Dosage: 1 GRAM, BID
     Route: 041
     Dates: start: 20151231, end: 20160104
  3. PLAVIX [Concomitant]
     Active Substance: CLOPIDOGREL BISULFATE
     Indication: CORONARY ARTERIAL STENT INSERTION
     Dosage: 75 MILLIGRAM, QD
     Route: 048
     Dates: start: 20151219, end: 20160119
  4. REBAMIPIDE [Concomitant]
     Active Substance: REBAMIPIDE
     Indication: GASTROINTESTINAL HAEMORRHAGE
     Dosage: 100 MILLIGRAM, TID
     Route: 048
     Dates: start: 20151228, end: 20160117
  5. CAMOSTAT MESYLATE [Concomitant]
     Active Substance: CAMOSTAT MESYLATE
     Indication: GASTROINTESTINAL HAEMORRHAGE
     Dosage: 100 MILLIGRAM, TID
     Route: 048
     Dates: start: 20151228, end: 20160117
  6. MILRILA K [Concomitant]
     Indication: CARDIAC FAILURE
     Dosage: 22.5 MILLIGRAM, QD
     Route: 041
     Dates: start: 20151225, end: 20160105
  7. CUBICIN [Suspect]
     Active Substance: DAPTOMYCIN
     Indication: DEVICE RELATED INFECTION
     Dosage: 262.5 MILLIGRAM, QD
     Route: 041
     Dates: start: 20160102, end: 20160102
  8. MAINTATE [Concomitant]
     Active Substance: BISOPROLOL FUMARATE
     Indication: TACHYCARDIA
     Dosage: 0.625 MILLIGRAM, QD
     Route: 048
     Dates: start: 20160101
  9. MEILAX [Concomitant]
     Active Substance: ETHYL LOFLAZEPATE
     Indication: DEPRESSIVE SYMPTOM
     Dosage: 1 MILLIGRAM, QD
     Route: 048
     Dates: start: 20151224, end: 20160112
  10. ALLOID G [Concomitant]
     Active Substance: SODIUM ALGINATE
     Indication: GASTROINTESTINAL HAEMORRHAGE
     Dosage: 20 MILLILITER, TID
     Route: 048
     Dates: start: 20151228, end: 20160117

REACTIONS (1)
  - Rash [Recovered/Resolved]

NARRATIVE: CASE EVENT DATE: 20160102
